FAERS Safety Report 6696712-X (Version None)
Quarter: 2010Q2

REPORT INFORMATION
  Report Type: 
  Country: None (occurrence: None)
  Receive Date: 20100421
  Receipt Date: 20091229
  Transmission Date: 20101027
  Serious: No
  Sender: FDA-Public Use
  Company Number: US-000049

PATIENT
  Sex: Female
  Weight: 26.3086 kg

DRUGS (4)
  1. KUVAN [Suspect]
     Indication: PHENYLKETONURIA
     Dosage: (500 MG QD ORAL)
     Route: 048
     Dates: start: 20091209
  2. FEROSOL [Concomitant]
  3. CLARITIN /00917501/ [Concomitant]
  4. NUTRIENTS WITHOUT PHENYLALANINE [Concomitant]

REACTIONS (3)
  - COLD SWEAT [None]
  - MALAISE [None]
  - SYNCOPE [None]
